FAERS Safety Report 6164882-8 (Version None)
Quarter: 2009Q2

REPORT INFORMATION
  Report Type: 
  Country: None (occurrence: None)
  Receive Date: 20090423
  Receipt Date: 20090315
  Transmission Date: 20091009
  Serious: Yes (Other)
  Sender: FDA-Public Use
  Company Number: PHHY2009BR14442

PATIENT
  Age: 8 Year
  Sex: Male

DRUGS (2)
  1. RITALIN [Suspect]
     Indication: PSYCHOMOTOR HYPERACTIVITY
     Dosage: 10 MG, BID
     Route: 048
     Dates: start: 20081001
  2. RITALIN [Suspect]
     Indication: LETHARGY
     Dosage: 10 MG, 2 TAB IN MORNING AND 1 TAB IN AFTERNOON
     Route: 048
     Dates: end: 20090415

REACTIONS (6)
  - ABNORMAL BEHAVIOUR [None]
  - AGGRESSION [None]
  - DECREASED INTEREST [None]
  - EMOTIONAL DISORDER [None]
  - LAZINESS [None]
  - WEIGHT DECREASED [None]
